FAERS Safety Report 9347511 (Version 1)
Quarter: 2013Q2

REPORT INFORMATION
  Report Type: Report from Study
  Country: US (occurrence: US)
  Receive Date: 20130614
  Receipt Date: 20130614
  Transmission Date: 20140414
  Serious: Yes (Hospitalization)
  Sender: FDA-Public Use
  Company Number: US-BIOGENIDEC-2013BI050517

PATIENT
  Age: 51 Year
  Sex: Female
  Weight: 89 kg

DRUGS (17)
  1. TYSABRI [Suspect]
     Indication: MULTIPLE SCLEROSIS
     Route: 042
     Dates: start: 20081216, end: 20130107
  2. TYSABRI [Suspect]
     Indication: MULTIPLE SCLEROSIS
     Route: 042
     Dates: start: 20130322
  3. ADDERALL XR [Concomitant]
     Route: 048
     Dates: start: 20130105
  4. NUVIGIL [Concomitant]
     Route: 048
     Dates: start: 20121223
  5. TIZANIDINE [Concomitant]
     Route: 048
     Dates: start: 20121212
  6. INDAPAMIDE [Concomitant]
     Route: 048
     Dates: start: 20121212
  7. RIVASTIGMINE [Concomitant]
     Dates: start: 20120618
  8. LEVOTHYROXINE [Concomitant]
     Route: 048
     Dates: start: 20120423
  9. CETIRIZINE [Concomitant]
     Route: 048
     Dates: start: 20120127
  10. CHOLECALCIFEROL [Concomitant]
     Route: 048
  11. TUSSIONEX PENNKINETIC ER [Concomitant]
     Indication: COUGH
     Dates: start: 20130215
  12. ALBUTEROL [Concomitant]
     Indication: WHEEZING
     Dates: start: 20130213
  13. DICLOFENAC SODIUM [Concomitant]
     Dates: start: 20121227
  14. TRAMADOL [Concomitant]
     Route: 048
     Dates: start: 20121215
  15. EPINEPHERINE [Concomitant]
     Route: 030
     Dates: start: 20121104
  16. VENLAFAXINE [Concomitant]
     Route: 048
  17. VENLAFAXINE [Concomitant]

REACTIONS (1)
  - Cholecystitis [Recovered/Resolved]
